FAERS Safety Report 6303374-X (Version None)
Quarter: 2009Q3

REPORT INFORMATION
  Report Type: 
  Country: None (occurrence: None)
  Receive Date: 20090810
  Receipt Date: 20090730
  Transmission Date: 20100115
  Serious: Yes (Death, Other)
  Sender: FDA-Public Use
  Company Number: 11832391

PATIENT
  Age: 31 Year
  Sex: Male

DRUGS (11)
  1. VEPESID [Suspect]
     Indication: LANGERHANS' CELL GRANULOMATOSIS
  2. HYDREA [Suspect]
  3. PARAPLATIN [Suspect]
  4. FUNGIZONE [Suspect]
  5. ENDOXAN [Suspect]
  6. METHOTREXATE [Suspect]
  7. VINCRISTINE SULFATE [Suspect]
  8. PREDNISOLONE [Suspect]
     Dosage: HIGH DOSAGES (30-40 MG/M^2) LAST 6 MONTHS.
  9. ONCOVIN [Suspect]
  10. NOVANTRONE [Suspect]
  11. RADIOTHERAPY [Concomitant]
     Dosage: TOTAL EXPOSURE 56 GY

REACTIONS (4)
  - DEATH [None]
  - HISTIOCYTOSIS [None]
  - NEUTROPENIA [None]
  - RESPIRATORY FAILURE [None]
